APPROVED DRUG PRODUCT: FLUOROURACIL
Active Ingredient: FLUOROURACIL
Strength: 5GM/100ML (50MG/ML)
Dosage Form/Route: INJECTABLE;INJECTION
Application: A209271 | Product #001
Applicant: NOVAST LABORATORIES LTD
Approved: Dec 11, 2019 | RLD: No | RS: No | Type: DISCN